FAERS Safety Report 17202151 (Version 1)
Quarter: 2019Q4

REPORT INFORMATION
  Report Type: Spontaneous
  Country: US (occurrence: US)
  Receive Date: 20191226
  Receipt Date: 20191226
  Transmission Date: 20200122
  Serious: No
  Sender: FDA-Public Use
  Company Number: NVSC2019US035781

PATIENT
  Age: 68 Year
  Sex: Male

DRUGS (1)
  1. NETSPOT [Suspect]
     Active Substance: DOTATATE GALLIUM GA-68
     Indication: CARCINOID TUMOUR
     Dosage: 5.08 G, UNKNOWN FREQUENCY
     Route: 042

REACTIONS (1)
  - Scan gallium abnormal [Unknown]
